FAERS Safety Report 5385596-8 (Version None)
Quarter: 2007Q3

REPORT INFORMATION
  Report Type: 
  Country: None (occurrence: None)
  Receive Date: 20070710
  Receipt Date: 20070625
  Transmission Date: 20080115
  Serious: Yes (Hospitalization)
  Sender: FDA-Public Use
  Company Number: 2007001189

PATIENT
  Age: 60 Year
  Sex: Female

DRUGS (1)
  1. TARCEVA [Suspect]
     Indication: NON-SMALL CELL LUNG CANCER
     Dosage: 150 MG (QD), ORAL
     Route: 048
     Dates: start: 20060801

REACTIONS (9)
  - CYANOSIS [None]
  - DYSPNOEA [None]
  - HEART RATE INCREASED [None]
  - MALIGNANT PLEURAL EFFUSION [None]
  - METASTASIS [None]
  - PLEURAL EFFUSION [None]
  - SUPERIOR VENA CAVAL OCCLUSION [None]
  - SYNCOPE [None]
  - VENA CAVA THROMBOSIS [None]
